FAERS Safety Report 14425982 (Version 1)
Quarter: 2018Q1

REPORT INFORMATION
  Report Type: Report from Study
  Country: US (occurrence: US)
  Receive Date: 20180123
  Receipt Date: 20180123
  Transmission Date: 20180509
  Serious: Yes (Hospitalization, Other)
  Sender: FDA-Public Use
  Company Number: US-BRISTOL-MYERS SQUIBB COMPANY-BMS-2017-095526

PATIENT
  Age: 66 Year
  Sex: Male
  Weight: 86.16 kg

DRUGS (2)
  1. APIXABAN [Suspect]
     Active Substance: APIXABAN
     Indication: PRODUCT USED FOR UNKNOWN INDICATION
     Dosage: 5 MG, BID
     Route: 065
     Dates: start: 2016
  2. APIXABAN [Suspect]
     Active Substance: APIXABAN
     Indication: DEEP VEIN THROMBOSIS
     Dosage: 10 MG, BID
     Route: 065
     Dates: start: 2016

REACTIONS (15)
  - Hyperlipidaemia [Unknown]
  - Rash [Recovering/Resolving]
  - Pain in extremity [Unknown]
  - Cough [Recovered/Resolved]
  - Pulmonary embolism [Unknown]
  - Nodule [Unknown]
  - Miliaria [Unknown]
  - Deep vein thrombosis [Unknown]
  - Hordeolum [Recovered/Resolved]
  - Varicose vein [Unknown]
  - Cyst [Unknown]
  - Methylenetetrahydrofolate reductase gene mutation [Unknown]
  - Musculoskeletal pain [Unknown]
  - Body tinea [Unknown]
  - Hyperhidrosis [Unknown]

NARRATIVE: CASE EVENT DATE: 2016
